FAERS Safety Report 5166398-4 (Version None)
Quarter: 2006Q4

REPORT INFORMATION
  Report Type: 
  Country: None (occurrence: None)
  Receive Date: 20061129
  Receipt Date: 20061116
  Transmission Date: 20070319
  Serious: Yes (Hospitalization, Other)
  Sender: FDA-Public Use
  Company Number: 2006-07-0145

PATIENT
  Age: 52 Year
  Sex: Female
  Weight: 117.4816 kg

DRUGS (4)
  1. PEG-INTRON (PEGINTEREFERON ALFA-2B) [Suspect]
     Indication: HEPATITIS C
     Dosage: SC
     Route: 058
     Dates: start: 20051217
  2. RIBAVIRIN [Suspect]
     Indication: HEPATITIS C
     Dosage: PO
     Route: 048
     Dates: start: 20051217
  3. ACTONEL (CON.) [Concomitant]
  4. OMEPRAZOLE (S-P) (CON.) [Concomitant]

REACTIONS (22)
  - ADHESION [None]
  - ALOPECIA [None]
  - APPENDICITIS PERFORATED [None]
  - ATELECTASIS [None]
  - BACTEROIDES INFECTION [None]
  - BLOOD CULTURE POSITIVE [None]
  - DEPRESSION [None]
  - DRY SKIN [None]
  - ESCHERICHIA INFECTION [None]
  - GANGRENE [None]
  - ILEUS [None]
  - PERITONITIS [None]
  - PHARYNGITIS STREPTOCOCCAL [None]
  - POSTOPERATIVE WOUND INFECTION [None]
  - PRURITUS [None]
  - PYREXIA [None]
  - RED BLOOD CELL COUNT DECREASED [None]
  - RHONCHI [None]
  - SEPSIS [None]
  - SMALL INTESTINAL OBSTRUCTION [None]
  - VENTRICULAR TACHYCARDIA [None]
  - WHITE BLOOD CELL COUNT DECREASED [None]
